FAERS Safety Report 10994059 (Version 3)
Quarter: 2016Q1

REPORT INFORMATION
  Report Type: Spontaneous
  Country: BR (occurrence: BR)
  Receive Date: 20150407
  Receipt Date: 20160329
  Transmission Date: 20160525
  Serious: Yes (Other)
  Sender: FDA-Public Use
  Company Number: BR-PFIZER INC-2015117277

PATIENT
  Age: 62 Year
  Sex: Female
  Weight: 69 kg

DRUGS (11)
  1. LIPITOR [Suspect]
     Active Substance: ATORVASTATIN CALCIUM
     Indication: BLOOD CHOLESTEROL ABNORMAL
     Dosage: 40 MG (1 TABLET), 1X/DAY AT NIGHT
     Route: 048
     Dates: start: 20150324
  2. FRONTAL [Suspect]
     Active Substance: ALPRAZOLAM
     Indication: ANXIETY
  3. LIPITOR [Suspect]
     Active Substance: ATORVASTATIN CALCIUM
     Indication: CARDIOVASCULAR DISORDER
  4. PLAVIX [Concomitant]
     Active Substance: CLOPIDOGREL BISULFATE
     Indication: CORONARY ARTERIAL STENT INSERTION
     Dosage: 75 MG 1 TABLET A DAY
     Dates: start: 201503
  5. SYNTHROID [Concomitant]
     Active Substance: LEVOTHYROXINE SODIUM
     Indication: HYPOTHYROIDISM
     Dosage: 1 TABLET A DAY
     Dates: start: 201503
  6. FRONTAL [Suspect]
     Active Substance: ALPRAZOLAM
     Indication: SLEEP DISORDER
     Dosage: 0.5 MG, 1X/DAY AT NIGHT
     Route: 048
     Dates: start: 2000
  7. RANITIDINE HYDROCHLORIDE. [Concomitant]
     Active Substance: RANITIDINE HYDROCHLORIDE
     Indication: ABDOMINAL DISCOMFORT
     Dosage: 300 MG, DAILY (150 MG 2 TABLETS A DAY)
     Dates: start: 201503
  8. SELOZOK [Concomitant]
     Active Substance: METOPROLOL SUCCINATE
     Indication: HEART RATE IRREGULAR
     Dosage: 100 MG DAILY (50 MG 2 TABLETS A DAY)
     Dates: start: 201503
  9. SOMALGIN [Concomitant]
     Active Substance: ASPIRIN\DIHYDROXYALUMINUM AMINOACETATE ANHYDROUS\MAGNESIUM CARBONATE
     Indication: CARDIOVASCULAR DISORDER
     Dosage: 100 MG 1 TABLET A DAY
     Dates: start: 201503
  10. EUTHYROX [Concomitant]
     Active Substance: LEVOTHYROXINE SODIUM
     Indication: THYROID DISORDER
     Dosage: 1 DF, DAILY IN FASTING
     Dates: start: 2000
  11. RENITEC [Concomitant]
     Active Substance: ENALAPRIL MALEATE
     Indication: BLOOD PRESSURE ABNORMAL
     Dosage: 20 MG, DAILY (10 MG 2 TABLETS A DAY)
     Dates: start: 201503

REACTIONS (6)
  - Coronary artery occlusion [Not Recovered/Not Resolved]
  - Tremor [Unknown]
  - Urinary tract infection [Unknown]
  - Impatience [Unknown]
  - Escherichia infection [Unknown]
  - Malaise [Unknown]

NARRATIVE: CASE EVENT DATE: 2015
